FAERS Safety Report 4537528-X (Version None)
Quarter: 2005Q1

REPORT INFORMATION
  Report Type: 
  Country: None (occurrence: None)
  Receive Date: 20041216
  Receipt Date: 20040927
  Transmission Date: 20050727
  Serious: Yes (Other)
  Sender: FDA-Public Use
  Company Number: HQWYE409728SEP04

PATIENT
  Age: 80 Year
  Sex: Female
  Weight: 49.94 kg

DRUGS (7)
  1. EFFEXOR XR [Suspect]
     Indication: DEPRESSION
     Dosage: 37.5 MG 1X PER 1 DAY, ORAL
     Route: 048
     Dates: start: 20040824
  2. MULTIVITAMIN [Concomitant]
  3. DIOVAN [Concomitant]
  4. LIPITOR [Concomitant]
  5. EVISTA [Concomitant]
  6. LANOXIN [Concomitant]
  7. PREVACID [Concomitant]

REACTIONS (4)
  - MOUTH ULCERATION [None]
  - SWELLING FACE [None]
  - SWOLLEN TONGUE [None]
  - TONGUE ULCERATION [None]
